FAERS Safety Report 7226554-8 (Version None)
Quarter: 2011Q1

REPORT INFORMATION
  Report Type: 
  Country: None (occurrence: None)
  Receive Date: 20110114
  Receipt Date: 20110106
  Transmission Date: 20110831
  Serious: Yes (Other)
  Sender: FDA-Public Use
  Company Number: CA-JNJFOC-20110102216

PATIENT
  Sex: Female
  Weight: 59 kg

DRUGS (5)
  1. REMICADE [Suspect]
     Indication: CROHN'S DISEASE
     Route: 042
  2. VITAMIN B-12 [Concomitant]
     Route: 050
  3. IRON [Concomitant]
  4. CODEINE [Concomitant]
  5. WELLBUTRIN [Concomitant]

REACTIONS (2)
  - TOOTH ABSCESS [None]
  - SYNOVIAL CYST [None]
